FAERS Safety Report 10785331 (Version 1)
Quarter: 2015Q1

REPORT INFORMATION
  Report Type: Spontaneous
  Country: US (occurrence: US)
  Receive Date: 20150211
  Receipt Date: 20150211
  Transmission Date: 20150721
  Serious: No
  Sender: FDA-Public Use
  Company Number: US-ELI_LILLY_AND_COMPANY-US201501005689

PATIENT
  Sex: Female

DRUGS (19)
  1. XANAX [Concomitant]
     Active Substance: ALPRAZOLAM
  2. SPIRONOLACTONE. [Concomitant]
     Active Substance: SPIRONOLACTONE
  3. HYDROCODONE BITARTRATE AND ACETAMINOPHEN [Concomitant]
     Active Substance: ACETAMINOPHEN\HYDROCODONE BITARTRATE
  4. HUMALOG [Concomitant]
     Active Substance: INSULIN LISPRO
  5. LANTUS [Concomitant]
     Active Substance: INSULIN GLARGINE
  6. ADVAIR HFA [Concomitant]
     Active Substance: FLUTICASONE PROPIONATE\SALMETEROL XINAFOATE
  7. ADCIRCA [Suspect]
     Active Substance: TADALAFIL
     Indication: PRODUCT USED FOR UNKNOWN INDICATION
     Dosage: UNK
  8. PLAVIX [Concomitant]
     Active Substance: CLOPIDOGREL BISULFATE
  9. VASOTEC [Concomitant]
     Active Substance: ENALAPRIL MALEATE
  10. TYVASO [Suspect]
     Active Substance: TREPROSTINIL
     Indication: PULMONARY HYPERTENSION
     Dosage: 18 UG, QID
     Route: 055
     Dates: start: 20141028, end: 20150106
  11. TRAMADOL [Concomitant]
     Active Substance: TRAMADOL
  12. SINGULAIR [Concomitant]
     Active Substance: MONTELUKAST SODIUM
  13. LASIX [Concomitant]
     Active Substance: FUROSEMIDE
  14. LIVALO [Concomitant]
     Active Substance: PITAVASTATIN CALCIUM
  15. GABAPENTIN. [Concomitant]
     Active Substance: GABAPENTIN
  16. PAXIL [Concomitant]
     Active Substance: PAROXETINE HYDROCHLORIDE
  17. GLIMEPIRIDE. [Concomitant]
     Active Substance: GLIMEPIRIDE
  18. LIDOCAINE. [Concomitant]
     Active Substance: LIDOCAINE
  19. MULTI VITAMIN [Concomitant]
     Active Substance: VITAMINS

REACTIONS (2)
  - Cough [Unknown]
  - Jaw disorder [Recovered/Resolved]
